FAERS Safety Report 11086242 (Version 1)
Quarter: 2015Q2

REPORT INFORMATION
  Report Type: Spontaneous
  Country: US (occurrence: US)
  Receive Date: 20150503
  Receipt Date: 20150503
  Transmission Date: 20150821
  Serious: No
  Sender: FDA-Public Use
  Company Number: US-ELI_LILLY_AND_COMPANY-US201504006385

PATIENT
  Age: 73 Year
  Sex: Male

DRUGS (9)
  1. SYNTHROID [Concomitant]
     Active Substance: LEVOTHYROXINE SODIUM
     Dosage: UNK, UNKNOWN
     Route: 065
  2. VITAMIN D [Concomitant]
     Active Substance: CHOLECALCIFEROL
     Dosage: UNK, UNKNOWN
     Route: 065
  3. IRON [Concomitant]
     Active Substance: IRON
     Dosage: UNK, UNKNOWN
     Route: 065
  4. ANDROGEL [Concomitant]
     Active Substance: TESTOSTERONE
     Dosage: UNK, UNKNOWN
     Route: 065
  5. LIOTHYRONINE [Concomitant]
     Active Substance: LIOTHYRONINE
     Dosage: UNK, UNKNOWN
     Route: 065
  6. HUMATROPE [Suspect]
     Active Substance: SOMATROPIN
     Indication: HORMONE REPLACEMENT THERAPY
     Dosage: 0.3 MG, QD
     Route: 065
     Dates: start: 201301
  7. FIXMYSKIN HEALING BALM VANILLA FRAGRANCE [Concomitant]
     Active Substance: HYDROCORTISONE
     Dosage: UNK, UNKNOWN
  8. NAPROXEN. [Concomitant]
     Active Substance: NAPROXEN
     Dosage: UNK, UNKNOWN
     Route: 065
  9. OXYCONTIN [Concomitant]
     Active Substance: OXYCODONE HYDROCHLORIDE
     Dosage: UNK, UNKNOWN
     Route: 065

REACTIONS (8)
  - Insomnia [Not Recovered/Not Resolved]
  - Vertigo [Unknown]
  - Balance disorder [Unknown]
  - Dermatitis [Unknown]
  - Pain in extremity [Unknown]
  - Arthropathy [Recovered/Resolved]
  - Headache [Unknown]
  - Arthralgia [Recovered/Resolved]

NARRATIVE: CASE EVENT DATE: 201301
